FAERS Safety Report 4336594-4 (Version None)
Quarter: 2004Q2

REPORT INFORMATION
  Report Type: 
  Country: None (occurrence: None)
  Receive Date: 20040412
  Receipt Date: 20020205
  Transmission Date: 20050107
  Serious: Yes (Hospitalization)
  Sender: FDA-Public Use
  Company Number: PHEH2002US01416

PATIENT
  Age: 46 Year
  Sex: Female
  Weight: 61 kg

DRUGS (1)
  1. TEGASEROD [Suspect]
     Indication: DYSPEPSIA
     Dosage: 2 MG, BID
     Route: 048
     Dates: start: 20011220

REACTIONS (4)
  - CONCOMITANT DISEASE PROGRESSION [None]
  - HYSTERECTOMY [None]
  - MENORRHAGIA [None]
  - OVARIAN CYST [None]
